FAERS Safety Report 9152994 (Version 1)
Quarter: 2013Q1

REPORT INFORMATION
  Report Type: Spontaneous
  Country: CA (occurrence: CA)
  Receive Date: 20130310
  Receipt Date: 20130310
  Transmission Date: 20140127
  Serious: Yes (Other)
  Sender: FDA-Public Use
  Company Number: CA-TEVA-390370USA

PATIENT
  Age: 63 Year
  Sex: Female

DRUGS (8)
  1. TERBINAFINE [Suspect]
     Indication: FUNGAL INFECTION
     Dosage: 250 MILLIGRAM DAILY;
     Route: 048
     Dates: start: 20130103, end: 201302
  2. RABEPRAZOLE [Concomitant]
  3. AMLODIPINE [Concomitant]
  4. CELEBREX [Concomitant]
  5. SOTALOL [Concomitant]
  6. ROSUVASTATIN [Concomitant]
  7. PERINDOPRIL [Concomitant]
  8. INDAPAMIDE [Concomitant]

REACTIONS (1)
  - Atrial fibrillation [Recovered/Resolved]
